FAERS Safety Report 4812895-8 (Version None)
Quarter: 2005Q4

REPORT INFORMATION
  Report Type: 
  Country: None (occurrence: None)
  Receive Date: 20051028
  Receipt Date: 20041203
  Transmission Date: 20060501
  Serious: No
  Sender: FDA-Public Use
  Company Number: US-GLAXOSMITHKLINE-A0536171A

PATIENT
  Age: 43 Year
  Sex: Female
  Weight: 54.1 kg

DRUGS (2)
  1. ADVAIR DISKUS 100/50 [Suspect]
     Indication: COUGH
     Route: 055
  2. SEREVENT [Suspect]
     Indication: COUGH
     Route: 055

REACTIONS (2)
  - APHONIA [None]
  - DYSPHONIA [None]
